FAERS Safety Report 6866353-X (Version None)
Quarter: 2010Q3

REPORT INFORMATION
  Report Type: 
  Country: None (occurrence: None)
  Receive Date: 20100722
  Receipt Date: 20100708
  Transmission Date: 20110219
  Serious: Yes (Hospitalization, Other)
  Sender: FDA-Public Use
  Company Number: PHHY2010GB28519

PATIENT
  Sex: Male

DRUGS (2)
  1. CLOZARIL [Suspect]
     Indication: SCHIZOPHRENIA
     Dosage: 500 MG/DAY
     Route: 048
     Dates: start: 20060310
  2. QUETIAPINE [Concomitant]
     Indication: PSYCHOTIC DISORDER
     Dosage: 600 MG
     Route: 048

REACTIONS (4)
  - DYSPNOEA [None]
  - MENTAL IMPAIRMENT [None]
  - NASAL CONGESTION [None]
  - SEDATION [None]
